FAERS Safety Report 25646089 (Version 1)
Quarter: 2025Q3

REPORT INFORMATION
  Report Type: Spontaneous
  Country: US (occurrence: US)
  Receive Date: 20250805
  Receipt Date: 20250805
  Transmission Date: 20251021
  Serious: No
  Sender: CALLIDITAS THERAPEUTICS AB
  Company Number: US-Calliditas-2025CAL02244

PATIENT
  Age: 33 Year
  Sex: Female

DRUGS (9)
  1. TARPEYO [Suspect]
     Active Substance: BUDESONIDE
     Indication: IgA nephropathy
     Route: 048
     Dates: start: 20230408, end: 202409
  2. TARPEYO [Suspect]
     Active Substance: BUDESONIDE
     Indication: IgA nephropathy
     Route: 048
     Dates: start: 202409
  3. LISINOPRIL [Concomitant]
     Active Substance: LISINOPRIL
  4. BUDESONIDE [Concomitant]
     Active Substance: BUDESONIDE
  5. TYLENOL [Concomitant]
     Active Substance: ACETAMINOPHEN
  6. FIORINAL [Concomitant]
     Active Substance: ASPIRIN\BUTALBITAL\CAFFEINE
  7. CALCITRIOL [Concomitant]
     Active Substance: CALCITRIOL
  8. ESTRADIOL [Concomitant]
     Active Substance: ESTRADIOL
  9. LOKELMA [Concomitant]
     Active Substance: SODIUM ZIRCONIUM CYCLOSILICATE

REACTIONS (2)
  - Hypoaesthesia [Not Recovered/Not Resolved]
  - Blood iron decreased [Not Recovered/Not Resolved]

NARRATIVE: CASE EVENT DATE: 20250701
